APPROVED DRUG PRODUCT: RENESE-R
Active Ingredient: POLYTHIAZIDE; RESERPINE
Strength: 2MG;0.25MG
Dosage Form/Route: TABLET;ORAL
Application: N013636 | Product #001
Applicant: PFIZER LABORATORIES DIV PFIZER INC
Approved: Approved Prior to Jan 1, 1982 | RLD: No | RS: No | Type: DISCN